FAERS Safety Report 7691480-7 (Version None)
Quarter: 2011Q3

REPORT INFORMATION
  Report Type: 
  Country: None (occurrence: None)
  Receive Date: 20110818
  Receipt Date: 20110811
  Transmission Date: 20111222
  Serious: Yes (Other)
  Sender: FDA-Public Use
  Company Number: US-B.I. PHARMACEUTICALS,INC./RIDGEFIELD-2011-DE-04550GD

PATIENT
  Age: 78 Year
  Sex: Male

DRUGS (10)
  1. DABIGATRAN ETEXILATE [Suspect]
     Indication: ATRIAL FIBRILLATION
  2. WARFARIN SODIUM [Suspect]
     Indication: CEREBROVASCULAR ACCIDENT PROPHYLAXIS
     Dosage: 6 MG
     Route: 048
  3. LOSARTAN POTASSIUM [Concomitant]
     Dosage: 100 MG
     Route: 048
  4. DABIGATRAN ETEXILATE [Suspect]
     Indication: CEREBROVASCULAR ACCIDENT PROPHYLAXIS
     Dosage: 300 MG
     Route: 048
  5. VERAPAMIL HCL [Concomitant]
     Dosage: 180 MG
     Route: 048
  6. CELECOXIB [Concomitant]
     Dosage: 200 MG
     Route: 048
  7. GEMFIBROZIL [Concomitant]
     Dosage: 1200 MG
     Route: 048
  8. DIGOXIN [Concomitant]
     Dosage: 0.125 MG ALTERNATING WITH 0.25 MG EVERY OTHER DAY
     Route: 048
  9. WARFARIN SODIUM [Suspect]
     Indication: ATRIAL FIBRILLATION
  10. FUROSEMIDE [Concomitant]
     Dosage: 20 MG
     Route: 048

REACTIONS (2)
  - RASH PRURITIC [None]
  - CIRCUMSTANCE OR INFORMATION CAPABLE OF LEADING TO MEDICATION ERROR [None]
